FAERS Safety Report 8413496-5 (Version None)
Quarter: 2012Q2

REPORT INFORMATION
  Report Type: 
  Country: None (occurrence: None)
  Receive Date: 20120605
  Receipt Date: 20120530
  Transmission Date: 20120825
  Serious: No
  Sender: FDA-Public Use
  Company Number: US-PFIZER INC-2012131239

PATIENT
  Sex: Female
  Weight: 38 kg

DRUGS (2)
  1. IBUPROFEN (ADVIL) [Suspect]
     Indication: ARTHRALGIA
     Dosage: 2 DF, EVERY 4-6 HOURS DAILY
     Route: 048
     Dates: start: 20120501, end: 20120501
  2. IBUPROFEN (ADVIL) [Suspect]
     Indication: NECK PAIN
     Dosage: 1 DF, EVERY 4-6 HOURS DAILY
     Route: 048
     Dates: start: 20120101

REACTIONS (3)
  - DISCOMFORT [None]
  - VOMITING [None]
  - ABDOMINAL DISCOMFORT [None]
